FAERS Safety Report 6824335-8 (Version None)
Quarter: 2010Q3

REPORT INFORMATION
  Report Type: 
  Country: None (occurrence: None)
  Receive Date: 20100708
  Receipt Date: 20100701
  Transmission Date: 20110219
  Serious: Yes (Hospitalization)
  Sender: FDA-Public Use
  Company Number: JP-GENENTECH-303826

PATIENT
  Age: 55 Year
  Sex: Male

DRUGS (9)
  1. GRTPA [Suspect]
     Indication: EMBOLIC STROKE
     Dosage: 49.3 ML, UNK
     Route: 042
     Dates: start: 20100517, end: 20100517
  2. RADICUT [Suspect]
     Indication: EMBOLIC STROKE
     Dosage: 60 MG, UNK
     Route: 041
     Dates: start: 20100517, end: 20100531
  3. WARFARIN POTASSIUM [Concomitant]
     Indication: PRODUCT USED FOR UNKNOWN INDICATION
     Dosage: 2 MG, UNK
     Route: 048
     Dates: start: 20100519
  4. WARFARIN POTASSIUM [Concomitant]
     Dosage: 3 MG, UNK
     Route: 048
     Dates: start: 20100524
  5. WARFARIN POTASSIUM [Concomitant]
     Dosage: 3.5 MG, UNK
     Route: 048
     Dates: start: 20100526
  6. WARFARIN POTASSIUM [Concomitant]
     Dosage: 3.0 MG, UNK
     Route: 048
     Dates: start: 20100531
  7. ASPIRIN [Concomitant]
     Indication: PREMEDICATION
  8. STATIN (UNK INGREDIENTS) [Concomitant]
     Indication: PRODUCT USED FOR UNKNOWN INDICATION
     Dosage: UNK
     Route: 048
     Dates: end: 20100517
  9. MEROPEN (JAPAN) [Concomitant]
     Indication: PRODUCT USED FOR UNKNOWN INDICATION
     Dosage: 1 G, UNK
     Route: 051
     Dates: start: 20100529

REACTIONS (1)
  - CHOLECYSTITIS ACUTE [None]
